FAERS Safety Report 8404144-9 (Version None)
Quarter: 2012Q2

REPORT INFORMATION
  Report Type: 
  Country: None (occurrence: None)
  Receive Date: 20120601
  Receipt Date: 20120524
  Transmission Date: 20120825
  Serious: Yes (Other)
  Sender: FDA-Public Use
  Company Number: US-PFIZER INC-2010140318

PATIENT
  Sex: Female
  Weight: 81.6 kg

DRUGS (20)
  1. ATARAX [Concomitant]
     Dosage: UNK
  2. CHANTIX [Suspect]
     Dosage: 0.5 MG, 1X/DAY
     Route: 048
     Dates: start: 20100717, end: 20100701
  3. LEVOTHYROXINE [Concomitant]
     Dosage: UNK
  4. CHANTIX [Suspect]
     Dosage: 0.5 MG, 1X/DAY
     Route: 048
     Dates: start: 20101001
  5. PROMETHAZINE HYDROCHLORIDE [Concomitant]
     Dosage: UNK
  6. PRAVACHOL [Concomitant]
     Dosage: UNK
  7. GABAPENTIN [Concomitant]
     Dosage: UNK
  8. DURAGESIC-100 [Concomitant]
     Indication: PAIN
     Dosage: UNK
  9. CELEXA [Concomitant]
     Dosage: UNK
  10. LISINOPRIL [Concomitant]
     Dosage: UNK
  11. BELLADONNA EXTRACT [Concomitant]
     Dosage: UNK
  12. CHANTIX [Suspect]
     Dosage: UNK
     Route: 048
     Dates: start: 20090101, end: 20090101
  13. CHANTIX [Suspect]
     Dosage: 1 MG, 2X/DAY
     Route: 048
     Dates: start: 20090101, end: 20090101
  14. CHANTIX [Suspect]
     Dosage: 0.5 MG, 2X/DAY
     Route: 048
     Dates: start: 20100701
  15. PERCOCET [Concomitant]
     Indication: PAIN
     Dosage: UNK
  16. NORCO [Concomitant]
     Indication: PAIN
     Dosage: UNK
  17. CHANTIX [Suspect]
     Indication: SMOKING CESSATION THERAPY
     Dosage: 0.5 MG, 1X/DAY
     Route: 048
     Dates: start: 20090101
  18. SOMA [Concomitant]
     Dosage: UNK
  19. TRAZODONE [Concomitant]
     Dosage: UNK
  20. PHENOBARBITAL [Concomitant]
     Dosage: UNK

REACTIONS (7)
  - INTERVERTEBRAL DISC DEGENERATION [None]
  - COMPULSIONS [None]
  - WEIGHT DECREASED [None]
  - AGITATION [None]
  - FEELING COLD [None]
  - BLOOD PRESSURE INCREASED [None]
  - ABNORMAL DREAMS [None]
